FAERS Safety Report 4575672-1 (Version None)
Quarter: 2005Q1

REPORT INFORMATION
  Report Type: 
  Country: None (occurrence: None)
  Receive Date: 20050209
  Receipt Date: 20050131
  Transmission Date: 20050727
  Serious: Yes (Other)
  Sender: FDA-Public Use
  Company Number: PHHO2005BE01839

PATIENT
  Age: 57 Year
  Sex: Female

DRUGS (1)
  1. FEMARA [Suspect]
     Dates: start: 20041028, end: 20050101

REACTIONS (3)
  - DIZZINESS [None]
  - HEADACHE [None]
  - VISUAL DISTURBANCE [None]
